FAERS Safety Report 6956044-9 (Version None)
Quarter: 2010Q3

REPORT INFORMATION
  Report Type: 
  Country: None (occurrence: None)
  Receive Date: 20100830
  Receipt Date: 20100819
  Transmission Date: 20110219
  Serious: Yes (Death)
  Sender: FDA-Public Use
  Company Number: GXKR2010CH09306

PATIENT
  Age: 36 Year
  Sex: Female

DRUGS (4)
  1. TAMOXIFEN (NGX) [Suspect]
     Indication: BREAST CANCER
     Dosage: UNK
     Route: 065
     Dates: start: 20050801, end: 20060601
  2. DIPHENHYDRAMINE (NGX) [Suspect]
     Route: 065
  3. TRIPTORELIN [Concomitant]
  4. GOSERELIN [Concomitant]

REACTIONS (10)
  - DIARRHOEA [None]
  - DRUG TOXICITY [None]
  - HEPATIC ENZYME ABNORMAL [None]
  - HEPATIC FAILURE [None]
  - HEPATIC STEATOSIS [None]
  - HEPATOMEGALY [None]
  - HYPOKALAEMIA [None]
  - HYPONATRAEMIA [None]
  - NAUSEA [None]
  - VOMITING [None]
